FAERS Safety Report 7169718-4 (Version None)
Quarter: 2010Q4

REPORT INFORMATION
  Report Type: 
  Country: None (occurrence: None)
  Receive Date: 20101206
  Receipt Date: 20101119
  Transmission Date: 20110411
  Serious: Yes (Hospitalization)
  Sender: FDA-Public Use
  Company Number: 2010005032

PATIENT
  Age: 49 Year
  Sex: Male

DRUGS (9)
  1. TARCEVA [Suspect]
     Indication: LUNG NEOPLASM MALIGNANT
     Dosage: 150 MG, TAKE 1 TABLET EVERY DAY ON EMPTY STOMACH), ORAL
     Route: 048
     Dates: start: 20101111
  2. MULTI-VITAMIN [Concomitant]
  3. ARIXTRA [Concomitant]
  4. ATIVAN [Concomitant]
  5. SENOKOT (SENNA FRUIT) (TABLET) [Concomitant]
  6. DILAUDID [Concomitant]
  7. OMEPRAZOLE [Concomitant]
  8. CELEXA [Concomitant]
  9. COLACE (DOCUSATE SODIUM) [Concomitant]

REACTIONS (3)
  - DECREASED APPETITE [None]
  - DEHYDRATION [None]
  - PAIN [None]
